FAERS Safety Report 13644320 (Version 1)
Quarter: 2017Q2

REPORT INFORMATION
  Report Type: Spontaneous
  Country: US (occurrence: US)
  Receive Date: 20170612
  Receipt Date: 20170612
  Transmission Date: 20170830
  Serious: No
  Sender: FDA-Public Use
  Company Number: US-ROCHE-662056

PATIENT
  Age: 59 Year
  Sex: Female

DRUGS (2)
  1. KLONOPIN [Suspect]
     Active Substance: CLONAZEPAM
     Indication: ANXIETY
     Route: 065
  2. KLONOPIN [Suspect]
     Active Substance: CLONAZEPAM
     Dosage: 0.75 MG IN AM AND 1.0 MG IN PM.SECOND INDICATION: PANIC
     Route: 065

REACTIONS (3)
  - Dyspnoea [Unknown]
  - Headache [Unknown]
  - Chest pain [Unknown]
